FAERS Safety Report 23852734 (Version 1)
Quarter: 2024Q2

REPORT INFORMATION
  Report Type: Spontaneous
  Country: US (occurrence: None)
  Receive Date: 20240513
  Receipt Date: 20240513
  Transmission Date: 20240716
  Serious: Yes (Life-Threatening)
  Sender: FDA-Public Use
  Company Number: None

PATIENT
  Age: 43 Year
  Sex: Female
  Weight: 73.5 kg

DRUGS (2)
  1. PACLITAXEL [Suspect]
     Active Substance: PACLITAXEL
     Indication: Ovarian cancer
     Dosage: FREQUENCY : ONCE;?
     Route: 041
     Dates: start: 20240510, end: 20240510
  2. FOSAPREPITANT [Concomitant]
     Active Substance: FOSAPREPITANT
     Dates: start: 20240510, end: 20240510

REACTIONS (9)
  - Flushing [None]
  - Hyperhidrosis [None]
  - Dyspnoea [None]
  - Dizziness [None]
  - Nausea [None]
  - Anxiety [None]
  - Diarrhoea [None]
  - Hypotension [None]
  - Infusion related reaction [None]

NARRATIVE: CASE EVENT DATE: 20240510
